FAERS Safety Report 8143169-8 (Version None)
Quarter: 2012Q1

REPORT INFORMATION
  Report Type: 
  Country: None (occurrence: None)
  Receive Date: 20120217
  Receipt Date: 20120213
  Transmission Date: 20120608
  Serious: No
  Sender: FDA-Public Use
  Company Number: US-PFIZER INC-2012022342

PATIENT
  Sex: Female

DRUGS (2)
  1. CAFFEINE CITRATE [Suspect]
     Dosage: UNK
  2. RELPAX [Suspect]
     Indication: MIGRAINE
     Dosage: 40 MG, 1X/DAY
     Route: 048

REACTIONS (1)
  - TONGUE DISORDER [None]
